FAERS Safety Report 13322949 (Version 1)
Quarter: 2017Q1

REPORT INFORMATION
  Report Type: Spontaneous
  Country: US (occurrence: US)
  Receive Date: 20170309
  Receipt Date: 20170309
  Transmission Date: 20170428
  Serious: No
  Sender: FDA-Public Use
  Company Number: US-BAYER-2017-045531

PATIENT
  Sex: Female

DRUGS (4)
  1. FLINTSTONES GUMMIES [Concomitant]
     Active Substance: VITAMINS
  2. MIDOL EXTENDED RELIEF [Suspect]
     Active Substance: NAPROXEN SODIUM
     Dosage: UNK
  3. ONE A DAY VITACRAVES GUMMIES [Concomitant]
  4. ALEVE [Suspect]
     Active Substance: NAPROXEN SODIUM

REACTIONS (2)
  - Drug ineffective [Unknown]
  - Product blister packaging issue [None]
